FAERS Safety Report 9882650 (Version 1)
Quarter: 2014Q1

REPORT INFORMATION
  Report Type: Spontaneous
  Country: US (occurrence: US)
  Receive Date: 20140207
  Receipt Date: 20140207
  Transmission Date: 20141002
  Serious: Yes (Hospitalization, Other)
  Sender: FDA-Public Use
  Company Number: CHPA2014US002210

PATIENT
  Sex: Female

DRUGS (5)
  1. EXCEDRIN TENSION HEADACHE [Suspect]
     Indication: HEADACHE
     Dosage: 2 DF, PRN
     Route: 048
  2. EXCEDRIN TENSION HEADACHE [Suspect]
     Indication: CLUSTER HEADACHE
  3. EXCEDRIN TENSION HEADACHE [Suspect]
     Indication: OFF LABEL USE
  4. EXCEDRIN MIGRAINE [Suspect]
     Indication: CLUSTER HEADACHE
  5. EXCEDRIN MIGRAINE [Suspect]
     Indication: OFF LABEL USE

REACTIONS (3)
  - Cluster headache [Recovered/Resolved]
  - Haematemesis [Recovered/Resolved]
  - Therapeutic response unexpected [Unknown]
